FAERS Safety Report 9591819 (Version 1)
Quarter: 2013Q4

REPORT INFORMATION
  Report Type: Spontaneous
  Country: US (occurrence: US)
  Receive Date: 20131004
  Receipt Date: 20131004
  Transmission Date: 20140711
  Serious: No
  Sender: FDA-Public Use
  Company Number: US-AMGEN-USASP2012083130

PATIENT
  Sex: Female
  Weight: 60.77 kg

DRUGS (7)
  1. ENBREL [Suspect]
     Indication: RHEUMATOID ARTHRITIS
     Dosage: 50 MG, QWK
     Route: 058
  2. FLUOXETINE [Concomitant]
     Dosage: 10 MG, UNK
  3. TUMS                               /00193601/ [Concomitant]
     Dosage: 500 MG, UNK
  4. FISH OIL [Concomitant]
     Dosage: UNK
  5. BIOTIN [Concomitant]
     Dosage: 5000
  6. FERROUS SULFATE [Concomitant]
     Dosage: UNK
  7. VITAMIN D3 [Concomitant]
     Dosage: 1000 UNIT, UNK

REACTIONS (2)
  - Anaemia [Unknown]
  - Nasopharyngitis [Unknown]
